FAERS Safety Report 13444443 (Version 1)
Quarter: 2017Q2

REPORT INFORMATION
  Report Type: Spontaneous
  Country: US (occurrence: US)
  Receive Date: 20170414
  Receipt Date: 20170414
  Transmission Date: 20170830
  Serious: No
  Sender: FDA-Public Use
  Company Number: US-NOVOPROD-527558

PATIENT
  Age: 74 Year
  Sex: Female

DRUGS (5)
  1. TRESIBA FLEXTOUCH U200 [Suspect]
     Active Substance: INSULIN DEGLUDEC
     Indication: TYPE 2 DIABETES MELLITUS
     Dosage: 90 IU, QD AT NIGHT BEFORE BED
     Route: 058
     Dates: start: 2016
  2. TRESIBA FLEXTOUCH U200 [Suspect]
     Active Substance: INSULIN DEGLUDEC
     Dosage: 80 IU, QD AT NIGHT BEFORE BED
     Route: 058
  3. NOVOLOG [Suspect]
     Active Substance: INSULIN ASPART
     Indication: TYPE 2 DIABETES MELLITUS
     Dosage: 40 UNITS PER MEAL
     Route: 058
  4. LANTUS [Suspect]
     Active Substance: INSULIN GLARGINE
     Indication: TYPE 2 DIABETES MELLITUS
     Dosage: 30 UNITS IN AM AND 70 UNITS AT NIGHT
     Route: 058
     Dates: end: 2016
  5. NOVOLOG [Suspect]
     Active Substance: INSULIN ASPART
     Dosage: 35 UNITS PER MEAL
     Route: 058

REACTIONS (4)
  - Neuropathy peripheral [Unknown]
  - Blood glucose increased [Recovered/Resolved]
  - Eye disorder [Unknown]
  - Blood glucose fluctuation [Recovered/Resolved]

NARRATIVE: CASE EVENT DATE: 2012
